FAERS Safety Report 6820599-5 (Version None)
Quarter: 2010Q3

REPORT INFORMATION
  Report Type: 
  Country: None (occurrence: None)
  Receive Date: 20100707
  Receipt Date: 20100628
  Transmission Date: 20110219
  Serious: Yes (Other)
  Sender: FDA-Public Use
  Company Number: US-PFIZER INC-2010076695

PATIENT
  Sex: Female
  Weight: 45.351 kg

DRUGS (12)
  1. REVATIO [Suspect]
     Indication: EMPHYSEMA
     Dosage: 20 MG, 2X/DAY
     Route: 048
     Dates: start: 20040101
  2. TRACLEER [Concomitant]
     Indication: DYSPNOEA
     Dosage: UNK
  3. TRACLEER [Concomitant]
     Indication: EMPHYSEMA
  4. SPIRIVA [Concomitant]
     Indication: DYSPNOEA
     Dosage: UNK
  5. SPIRIVA [Concomitant]
     Indication: EMPHYSEMA
  6. ADVAIR DISKUS 100/50 [Concomitant]
     Indication: DYSPNOEA
     Dosage: UNK
  7. ADVAIR DISKUS 100/50 [Concomitant]
     Indication: EMPHYSEMA
  8. ALBUTEROL [Concomitant]
     Indication: DYSPNOEA
     Dosage: UNK
  9. ALBUTEROL [Concomitant]
     Indication: EMPHYSEMA
  10. PULMICORT [Concomitant]
     Indication: DYSPNOEA
     Dosage: UNK
  11. PULMICORT [Concomitant]
     Indication: EMPHYSEMA
  12. WARFARIN [Concomitant]
     Dosage: UNK

REACTIONS (1)
  - MONOPLEGIA [None]
